FAERS Safety Report 5102779-2 (Version None)
Quarter: 2006Q3

REPORT INFORMATION
  Report Type: 
  Country: None (occurrence: None)
  Receive Date: 20060907
  Receipt Date: 20060822
  Transmission Date: 20061208
  Serious: Yes (Hospitalization)
  Sender: FDA-Public Use
  Company Number: 2006001163

PATIENT
  Age: 59 Year
  Sex: Female

DRUGS (7)
  1. TARCEVA [Suspect]
     Indication: ADENOCARCINOMA
     Dosage: 150 MG (QD), ORAL
     Route: 048
     Dates: start: 20060520
  2. TARCEVA [Suspect]
     Indication: METASTATIC NEOPLASM
     Dosage: 150 MG (QD), ORAL
     Route: 048
     Dates: start: 20060520
  3. HEPARIN-FRACTION, SODIUM SALT [Suspect]
     Dates: start: 20060519, end: 20060522
  4. ACETAMINOPHEN [Concomitant]
  5. MEDROL ACETATE [Concomitant]
  6. ACETAMINOPHEN [Concomitant]
  7. XANAX [Concomitant]

REACTIONS (2)
  - DISSEMINATED INTRAVASCULAR COAGULATION [None]
  - THROMBOCYTOPENIA [None]
